FAERS Safety Report 15362063 (Version 1)
Quarter: 2018Q3

REPORT INFORMATION
  Report Type: Spontaneous
  Country: US (occurrence: US)
  Receive Date: 20180831
  Receipt Date: 20180831
  Transmission Date: 20181021
  Serious: Yes (Other)
  Sender: FDA-Public Use
  Company Number: None

PATIENT
  Age: 76 Year
  Sex: Female
  Weight: 77.11 kg

DRUGS (7)
  1. VITAMIN B12 [Concomitant]
     Active Substance: CYANOCOBALAMIN
  2. CRANBERRY EXTRACT [Concomitant]
     Active Substance: CRANBERRY JUICE
  3. SYNTHROID [Concomitant]
     Active Substance: LEVOTHYROXINE SODIUM
  4. OMEGA?3 WILD SALMON OIL [Concomitant]
  5. COENZYME Q10 (UBIDECARENONE) [Concomitant]
  6. DOXYCYCLINE HYCLATE. [Suspect]
     Active Substance: DOXYCYCLINE HYCLATE
     Indication: INFECTION
     Dosage: ?          QUANTITY:20 DF DOSAGE FORM;?
     Route: 048
     Dates: start: 20180727, end: 20180809
  7. VITAMIN D3 [Concomitant]
     Active Substance: CHOLECALCIFEROL

REACTIONS (3)
  - Faeces discoloured [None]
  - Drug dose omission [None]
  - Constipation [None]

NARRATIVE: CASE EVENT DATE: 20180801
